FAERS Safety Report 5974711-0 (Version None)
Quarter: 2008Q4

REPORT INFORMATION
  Report Type: 
  Country: None (occurrence: None)
  Receive Date: 20081201
  Receipt Date: 20080206
  Transmission Date: 20090506
  Serious: No
  Sender: FDA-Public Use
  Company Number: US-AMGEN-KDL264649

PATIENT
  Sex: Female
  Weight: 101.2 kg

DRUGS (4)
  1. ENBREL [Suspect]
     Indication: RHEUMATOID ARTHRITIS
     Route: 058
     Dates: start: 20071025
  2. OXYCODONE HCL [Concomitant]
     Route: 048
  3. VITAMIN TAB [Concomitant]
     Route: 048
  4. TYLENOL (CAPLET) [Concomitant]
     Route: 048

REACTIONS (3)
  - INJURY [None]
  - PHARYNGITIS STREPTOCOCCAL [None]
  - VERTEBRAL INJURY [None]
